FAERS Safety Report 6384439-3 (Version None)
Quarter: 2009Q4

REPORT INFORMATION
  Report Type: 
  Country: None (occurrence: None)
  Receive Date: 20091001
  Receipt Date: 20090924
  Transmission Date: 20100525
  Serious: No
  Sender: FDA-Public Use
  Company Number: US-B.I. PHARMACEUTICALS,INC./RIDGEFIELD-2009-BP-11246BP

PATIENT
  Age: 82 Year
  Sex: Male

DRUGS (2)
  1. FLOMAX [Suspect]
     Indication: BENIGN PROSTATIC HYPERPLASIA
     Dosage: 0.4 MG
     Route: 048
     Dates: start: 20090915
  2. DIOVAN [Concomitant]
     Indication: HYPERTENSION
     Route: 048

REACTIONS (4)
  - COUGH [None]
  - LARYNGITIS [None]
  - NASAL CONGESTION [None]
  - PHARYNGITIS [None]
